FAERS Safety Report 24241799 (Version 1)
Quarter: 2024Q3

REPORT INFORMATION
  Report Type: Report from Study
  Country: TN (occurrence: TN)
  Receive Date: 20240823
  Receipt Date: 20240823
  Transmission Date: 20241017
  Serious: Yes (Other)
  Sender: ABBVIE
  Company Number: TN-ABBVIE-5887934

PATIENT
  Age: 78 Year
  Sex: Female

DRUGS (15)
  1. HUMIRA [Suspect]
     Active Substance: ADALIMUMAB
     Indication: Crohn^s disease
     Dosage: FORM STRENGTH: 40 MG
     Route: 058
     Dates: start: 20190319, end: 20190528
  2. HUMIRA [Suspect]
     Active Substance: ADALIMUMAB
     Dosage: FORM STRENGTH: 40 MG
     Route: 058
     Dates: end: 20240706
  3. HUMIRA [Suspect]
     Active Substance: ADALIMUMAB
     Dosage: FORM STRENGTH: 40 MG
     Route: 058
     Dates: start: 20200408, end: 202007
  4. HUMIRA [Suspect]
     Active Substance: ADALIMUMAB
     Dosage: FORM STRENGTH: 40 MG
     Route: 058
     Dates: start: 201907, end: 202001
  5. HUMIRA [Suspect]
     Active Substance: ADALIMUMAB
     Dosage: FORM STRENGTH: 40 MG
     Route: 058
     Dates: start: 20240811
  6. HUMIRA [Suspect]
     Active Substance: ADALIMUMAB
     Dosage: LOADING DOSE. FORM STRENGTH: 40 MG
     Route: 058
     Dates: start: 20190305, end: 20190305
  7. AUGMENTIN [Concomitant]
     Active Substance: AMOXICILLIN\CLAVULANATE POTASSIUM
     Indication: Product used for unknown indication
  8. Albifer [Concomitant]
     Indication: Iron deficiency
     Dosage: 1 TABLET
     Route: 048
     Dates: start: 2020
  9. DAFALGAN [Concomitant]
     Active Substance: ACETAMINOPHEN
     Indication: Product used for unknown indication
  10. Calperos [Concomitant]
     Indication: Calcium deficiency
     Dosage: 6 TABLET/START DATE TEXT: MORE THAN 1 YEAR AGO
     Route: 048
  11. Epomax [Concomitant]
     Indication: Renal disorder
     Dosage: 1 INJECTION
     Dates: start: 2022
  12. ACETAMINOPHEN [Concomitant]
     Active Substance: ACETAMINOPHEN
     Indication: Product used for unknown indication
  13. LOWRADIP [Concomitant]
     Indication: Hypertension
     Dosage: 0.5 TABLET/FORM STRENGTH: 20 MG
     Route: 048
     Dates: start: 2021
  14. NEBILUS [Concomitant]
     Indication: Hypertension
     Dosage: 0.5 TABLET/FORM STRENGTH: 5 MG
     Route: 048
     Dates: start: 2021
  15. Purinol [Concomitant]
     Indication: Gout
     Route: 048
     Dates: start: 202302

REACTIONS (9)
  - Dialysis [Not Recovered/Not Resolved]
  - Abdominal pain upper [Recovered/Resolved]
  - Pain in extremity [Not Recovered/Not Resolved]
  - Bronchitis [Recovered/Resolved]
  - Oxygen saturation decreased [Recovered/Resolved]
  - Skin fissures [Not Recovered/Not Resolved]
  - Anal haemorrhage [Recovered/Resolved]
  - Back pain [Not Recovered/Not Resolved]
  - Inappropriate schedule of product administration [Recovered/Resolved]

NARRATIVE: CASE EVENT DATE: 20240601
